FAERS Safety Report 6346291-1 (Version None)
Quarter: 2009Q3

REPORT INFORMATION
  Report Type: 
  Country: None (occurrence: None)
  Receive Date: 20090909
  Receipt Date: 20090825
  Transmission Date: 20100115
  Serious: Yes (Death)
  Sender: FDA-Public Use
  Company Number: ZA-ROCHE-655323

PATIENT
  Sex: Female

DRUGS (2)
  1. TAMIFLU [Suspect]
     Route: 050
     Dates: start: 20090801, end: 20090822
  2. RELENZA [Suspect]
     Route: 050
     Dates: start: 20090801, end: 20090822

REACTIONS (1)
  - DEATH [None]
